FAERS Safety Report 18992347 (Version 1)
Quarter: 2021Q1

REPORT INFORMATION
  Report Type: Spontaneous
  Country: US (occurrence: US)
  Receive Date: 20210310
  Receipt Date: 20210310
  Transmission Date: 20210420
  Serious: No
  Sender: FDA-Public Use
  Company Number: None

PATIENT
  Age: 58 Year
  Sex: Male
  Weight: 51.75 kg

DRUGS (2)
  1. ISOVUE 370 [Suspect]
     Active Substance: IOPAMIDOL
     Indication: ADRENAL MASS
     Dosage: ?
     Route: 040
     Dates: start: 20210305, end: 20210305
  2. ISOVUE 370 [Concomitant]
     Active Substance: IOPAMIDOL

REACTIONS (4)
  - Pruritus [None]
  - Urticaria [None]
  - Eye swelling [None]
  - Injection related reaction [None]

NARRATIVE: CASE EVENT DATE: 20210305
